FAERS Safety Report 8823281 (Version 1)
Quarter: 2012Q4

REPORT INFORMATION
  Report Type: 
  Country: DE (occurrence: DE)
  Receive Date: 20121003
  Receipt Date: 20121003
  Transmission Date: 20130627
  Serious: Yes (Other)
  Sender: FDA-Public Use
  Company Number: DE-GLAXOSMITHKLINE-D0077132A

PATIENT
  Age: 36 Year
  Sex: Female
  Weight: 72 kg

DRUGS (3)
  1. FORMIGRAN [Suspect]
     Indication: MIGRAINE
     Dosage: 2.5MG Unknown
     Route: 048
     Dates: start: 20120427, end: 20120427
  2. DROSPIRENONE\ETHINYL ESTRADIOL [Suspect]
     Indication: ORAL CONTRACEPTION
     Route: 048
  3. TREVILOR [Suspect]
     Indication: DEPRESSION
     Dosage: 75MG Per day
     Route: 048
     Dates: end: 20120428

REACTIONS (8)
  - Serotonin syndrome [Recovered/Resolved]
  - Overdose [Recovered/Resolved]
  - Dizziness [Recovered/Resolved]
  - Dysphagia [Recovered/Resolved]
  - Flushing [Recovered/Resolved]
  - Headache [Recovered/Resolved]
  - Paraesthesia [Recovered/Resolved]
  - Sensory level abnormal [Recovered/Resolved]
